FAERS Safety Report 6996389-X (Version None)
Quarter: 2010Q3

REPORT INFORMATION
  Report Type: 
  Country: None (occurrence: None)
  Receive Date: 20100918
  Receipt Date: 20090324
  Transmission Date: 20110219
  Serious: No
  Sender: FDA-Public Use
  Company Number: US-WYE-H07911409

PATIENT

DRUGS (1)
  1. EFFEXOR XR [Suspect]
     Dosage: 150 MG, FREQUENCY UNKNOWN
     Route: 048

REACTIONS (3)
  - AGITATION [None]
  - ANGER [None]
  - DRUG INEFFECTIVE [None]
